FAERS Safety Report 12167306 (Version 2)
Quarter: 2016Q2

REPORT INFORMATION
  Report Type: Spontaneous
  Country: US (occurrence: US)
  Receive Date: 20160310
  Receipt Date: 20160401
  Transmission Date: 20160815
  Serious: No
  Sender: FDA-Public Use
  Company Number: US-BAYER-2016-047591

PATIENT
  Age: 79 Year
  Sex: Male

DRUGS (1)
  1. ALEVE [Suspect]
     Active Substance: NAPROXEN SODIUM
     Indication: BACK PAIN
     Dosage: 2 DF, UNK
     Route: 048

REACTIONS (7)
  - Skin disorder [None]
  - Foreign body [None]
  - Product use issue [None]
  - Oral mucosal blistering [None]
  - Lip swelling [Not Recovered/Not Resolved]
  - Oral discomfort [Not Recovered/Not Resolved]
  - Stomatitis [None]

NARRATIVE: CASE EVENT DATE: 201603
